FAERS Safety Report 21960278 (Version 15)
Quarter: 2024Q4

REPORT INFORMATION
  Report Type: Report from Study
  Country: CA (occurrence: CA)
  Receive Date: 20230207
  Receipt Date: 20241120
  Transmission Date: 20250115
  Serious: No
  Sender: ROCHE
  Company Number: CA-ROCHE-3000311

PATIENT
  Age: 52 Year
  Sex: Female

DRUGS (2)
  1. OCRELIZUMAB [Suspect]
     Active Substance: OCRELIZUMAB
     Indication: Relapsing-remitting multiple sclerosis
     Dosage: 300 MG AT DAY 0 AND 14, THEN 600 MG EVERY 6 MONTH
     Route: 042
     Dates: start: 20201105
  2. MIRABEGRON [Concomitant]
     Active Substance: MIRABEGRON

REACTIONS (17)
  - Laryngitis [Recovered/Resolved]
  - COVID-19 [Unknown]
  - Trigeminal neuralgia [Recovered/Resolved]
  - Weight increased [Unknown]
  - Alopecia [Unknown]
  - Oral herpes [Recovering/Resolving]
  - Urinary tract infection [Unknown]
  - Animal bite [Unknown]
  - Feeling abnormal [Unknown]
  - Pain [Not Recovered/Not Resolved]
  - Restless legs syndrome [Not Recovered/Not Resolved]
  - Urinary tract infection [Unknown]
  - Dry mouth [Not Recovered/Not Resolved]
  - Gait disturbance [Not Recovered/Not Resolved]
  - Temperature intolerance [Not Recovered/Not Resolved]
  - Off label use [Unknown]
  - Balance disorder [Not Recovered/Not Resolved]

NARRATIVE: CASE EVENT DATE: 20220107
